FAERS Safety Report 10355287 (Version 2)
Quarter: 2014Q3

REPORT INFORMATION
  Report Type: Spontaneous
  Country: US (occurrence: US)
  Receive Date: 20140731
  Receipt Date: 20140731
  Transmission Date: 20150326
  Serious: Yes (Hospitalization)
  Sender: FDA-Public Use
  Company Number: US-US-EMD SERONO, INC.-230500K08USA

PATIENT
  Sex: Female
  Weight: 84 kg

DRUGS (3)
  1. REBIF [Suspect]
     Active Substance: INTERFERON BETA-1A
     Indication: MULTIPLE SCLEROSIS
     Route: 058
     Dates: start: 20080113, end: 200808
  2. REBIF [Suspect]
     Active Substance: INTERFERON BETA-1A
     Route: 058
     Dates: end: 2009
  3. LYRICA [Concomitant]
     Active Substance: PREGABALIN
     Indication: FIBROMYALGIA
     Route: 065

REACTIONS (8)
  - Multiple sclerosis relapse [Unknown]
  - Hepatic steatosis [Recovering/Resolving]
  - Type 2 diabetes mellitus [Recovering/Resolving]
  - Vomiting [Recovered/Resolved]
  - Hepatic enzyme increased [Recovering/Resolving]
  - Generalised tonic-clonic seizure [Recovered/Resolved]
  - Abdominal pain [Recovering/Resolving]
  - Gastric ulcer [Recovering/Resolving]

NARRATIVE: CASE EVENT DATE: 2008
